FAERS Safety Report 19120840 (Version 1)
Quarter: 2021Q2

REPORT INFORMATION
  Report Type: Spontaneous
  Country: CO (occurrence: CO)
  Receive Date: 20210412
  Receipt Date: 20210412
  Transmission Date: 20210717
  Serious: Yes (Life-Threatening, Hospitalization)
  Sender: FDA-Public Use
  Company Number: CO-MSNLABS-2021MSNSPO00088

PATIENT

DRUGS (6)
  1. CARBOPLATINO 430 MG [Concomitant]
     Indication: PRODUCT USED FOR UNKNOWN INDICATION
     Dosage: DAY1, 2 HOURS
     Route: 042
     Dates: start: 20210128
  2. FOSAPREPITANT FOR INJECTION 150MG/VIAL [Suspect]
     Active Substance: FOSAPREPITANT
     Indication: NAUSEA
     Dosage: 150 MG ON DAY 1
     Route: 042
     Dates: start: 20210324, end: 20210324
  3. ETOPOSIDO 100 MG/5ML [Suspect]
     Active Substance: ETOPOSIDE
     Indication: LUNG NEOPLASM MALIGNANT
     Dosage: 170 MG ON DAY 1 AND DAY 3
     Route: 042
     Dates: start: 20210324, end: 20210324
  4. ONDANSETRON 16 MG [Concomitant]
     Indication: PRODUCT USED FOR UNKNOWN INDICATION
     Dosage: DAYS 1 AND 3
     Route: 042
     Dates: start: 20210128
  5. GOSERELIN [Concomitant]
     Active Substance: GOSERELIN
     Indication: PRODUCT USED FOR UNKNOWN INDICATION
     Dosage: 10.8 QUARTERLY
     Route: 065
  6. PERFILGRASTIM 6 MG SC [Concomitant]
     Indication: PRODUCT USED FOR UNKNOWN INDICATION
     Dosage: DAY 3
     Route: 058
     Dates: start: 20210128

REACTIONS (2)
  - Chest discomfort [Recovered/Resolved]
  - Dyspnoea [Recovered/Resolved]

NARRATIVE: CASE EVENT DATE: 20210324
